FAERS Safety Report 17758607 (Version 1)
Quarter: 2020Q2

REPORT INFORMATION
  Report Type: Spontaneous
  Country: FR (occurrence: FR)
  Receive Date: 20200507
  Receipt Date: 20200507
  Transmission Date: 20200714
  Serious: Yes (Hospitalization)
  Sender: FDA-Public Use
  Company Number: FR-ELI_LILLY_AND_COMPANY-FR202004011169

PATIENT
  Age: 62 Year
  Sex: Male
  Weight: 89 kg

DRUGS (1)
  1. OLUMIANT [Suspect]
     Active Substance: BARICITINIB
     Indication: RHEUMATOID ARTHRITIS
     Dosage: UNK UNK, UNKNOWN
     Route: 048
     Dates: start: 2019, end: 202002

REACTIONS (1)
  - Metastases to peritoneum [Not Recovered/Not Resolved]

NARRATIVE: CASE EVENT DATE: 20200310
